FAERS Safety Report 7592737-0 (Version None)
Quarter: 2011Q3

REPORT INFORMATION
  Report Type: 
  Country: None (occurrence: None)
  Receive Date: 20110706
  Receipt Date: 20110630
  Transmission Date: 20111222
  Serious: Yes (Hospitalization, Other)
  Sender: FDA-Public Use
  Company Number: US-PFIZER INC-2010006418

PATIENT
  Sex: Female

DRUGS (16)
  1. AMBIEN [Concomitant]
     Indication: INSOMNIA
     Dosage: UNK
     Dates: start: 20070823, end: 20090601
  2. OXYCODONE AND ACETAMINOPHEN [Concomitant]
     Indication: ANALGESIC THERAPY
     Dosage: UNK
     Dates: start: 20080130, end: 20080601
  3. CHANTIX [Suspect]
     Indication: SMOKING CESSATION THERAPY
     Dosage: 0.5MG DAILY
     Dates: start: 20071026
  4. CHANTIX [Suspect]
     Dosage: 1 MG, 2X/DAY
     Dates: start: 20080220
  5. ACETAMINOPHEN AND HYDROCODONE BITARTRATE [Concomitant]
     Indication: ANALGESIC THERAPY
     Dosage: UNK
     Dates: start: 20080328, end: 20080928
  6. DEPAKOTE [Concomitant]
     Indication: BIPOLAR DISORDER
     Dosage: UNK
     Dates: start: 20060101, end: 20080501
  7. ATENOLOL [Concomitant]
     Indication: MIGRAINE
     Dosage: UNK
     Dates: start: 20080114, end: 20090601
  8. OMEPRAZOLE [Concomitant]
     Indication: GASTROOESOPHAGEAL REFLUX DISEASE
     Dosage: UNK
     Dates: start: 20050921, end: 20090601
  9. NASONEX [Concomitant]
     Indication: NASAL DISORDER
     Dosage: UNK
     Dates: start: 20070824, end: 20090601
  10. METHYLPREDNISOLONE [Concomitant]
     Indication: BACK PAIN
     Dosage: UNK
     Dates: start: 20080326, end: 20081001
  11. PREDNISONE [Concomitant]
     Indication: BACK PAIN
     Dosage: UNK
     Dates: start: 20080326, end: 20081001
  12. SERTRALINE [Concomitant]
     Indication: BIPOLAR DISORDER
     Dosage: UNK
     Dates: start: 20050901, end: 20081201
  13. TRAZODONE [Concomitant]
     Indication: BIPOLAR DISORDER
     Dosage: UNK
     Dates: start: 20060101, end: 20081201
  14. CYCLOBENZAPRINE [Concomitant]
     Indication: MUSCLE SPASMS
     Dosage: UNK
     Dates: start: 20080225, end: 20080927
  15. CIPROFLOXACIN [Concomitant]
     Indication: BACTERIAL INFECTION
     Dosage: UNK
     Dates: start: 20061127, end: 20080901
  16. GABAPENTIN [Concomitant]
     Indication: BACK PAIN
     Dosage: UNK
     Dates: start: 20080111, end: 20080501

REACTIONS (5)
  - MOOD SWINGS [None]
  - BLOOD GLUCOSE INCREASED [None]
  - SUICIDAL IDEATION [None]
  - DEPRESSION [None]
  - ABNORMAL BEHAVIOUR [None]
